FAERS Safety Report 10275270 (Version 2)
Quarter: 2014Q3

REPORT INFORMATION
  Report Type: Spontaneous
  Country: FR (occurrence: FR)
  Receive Date: 20140703
  Receipt Date: 20140703
  Transmission Date: 20150326
  Serious: Yes (Other)
  Sender: FDA-Public Use
  Company Number: FR-009507513-1404FRA007806

PATIENT
  Age: 67 Year
  Sex: Female
  Weight: 54 kg

DRUGS (2)
  1. FOSAVANCE [Suspect]
     Active Substance: ALENDRONATE SODIUM\CHOLECALCIFEROL
     Indication: OSTEOPOROSIS
     Dosage: 70MG WEEKLY
     Route: 065
     Dates: start: 20140116, end: 20140130
  2. FOSAVANCE [Suspect]
     Active Substance: ALENDRONATE SODIUM\CHOLECALCIFEROL
     Indication: OSTEOPOROSIS

REACTIONS (8)
  - Oesophageal pain [Recovering/Resolving]
  - Muscle spasms [Recovering/Resolving]
  - Tendonitis [Not Recovered/Not Resolved]
  - Abdominal pain upper [Recovering/Resolving]
  - Influenza like illness [Recovered/Resolved]
  - Pain in jaw [Recovering/Resolving]
  - Osteonecrosis of jaw [Recovering/Resolving]
  - Infection [Recovering/Resolving]

NARRATIVE: CASE EVENT DATE: 20140219
